FAERS Safety Report 11727175 (Version 1)
Quarter: 2015Q4

REPORT INFORMATION
  Report Type: Spontaneous
  Country: US (occurrence: US)
  Receive Date: 20151112
  Receipt Date: 20151112
  Transmission Date: 20160304
  Serious: Yes (Death)
  Sender: FDA-Public Use
  Company Number: US-BEH-2015055741

PATIENT
  Age: 23 Year
  Sex: Male

DRUGS (4)
  1. GLUCOCORTICOIDS [Suspect]
     Active Substance: UNSPECIFIED INGREDIENT
     Indication: SUBACUTE SCLEROSING PANENCEPHALITIS
     Route: 042
  2. IVIG [Suspect]
     Active Substance: HUMAN IMMUNOGLOBULIN G
     Indication: SUBACUTE SCLEROSING PANENCEPHALITIS
     Route: 042
  3. ANTIVIRALS NOS [Suspect]
     Active Substance: UNSPECIFIED INGREDIENT
     Indication: SUBACUTE SCLEROSING PANENCEPHALITIS
  4. ANTIBIOTICS [Suspect]
     Active Substance: UNSPECIFIED INGREDIENT
     Indication: SUBACUTE SCLEROSING PANENCEPHALITIS

REACTIONS (1)
  - Drug ineffective for unapproved indication [Fatal]
